FAERS Safety Report 9350367 (Version 1)
Quarter: 2013Q2

REPORT INFORMATION
  Report Type: Spontaneous
  Country: FR (occurrence: FR)
  Receive Date: 20130617
  Receipt Date: 20130617
  Transmission Date: 20140414
  Serious: Yes (Death, Congenital Anomaly)
  Sender: FDA-Public Use
  Company Number: FR-009507513-1306FRA003703

PATIENT
  Sex: Female

DRUGS (1)
  1. NUVARING [Suspect]
     Dosage: UNK
     Route: 064
     Dates: start: 20120517

REACTIONS (2)
  - Meningomyelocele [Fatal]
  - Foetal exposure during pregnancy [Unknown]
